FAERS Safety Report 12620979 (Version 1)
Quarter: 2016Q3

REPORT INFORMATION
  Report Type: Report from Study
  Country: BR (occurrence: BR)
  Receive Date: 20160804
  Receipt Date: 20160804
  Transmission Date: 20161109
  Serious: Yes (Hospitalization, Other)
  Sender: FDA-Public Use
  Company Number: PHHY2016BR106765

PATIENT
  Sex: Male
  Weight: 110 kg

DRUGS (1)
  1. ONBREZ BREEZHALER [Suspect]
     Active Substance: INDACATEROL
     Indication: DYSPNOEA
     Dosage: BID (IN THE MORNING AND AT NIGHT)
     Route: 055

REACTIONS (7)
  - Blood pressure abnormal [Unknown]
  - Product use issue [Unknown]
  - General physical health deterioration [Unknown]
  - Dyspnoea [Unknown]
  - Coagulopathy [Unknown]
  - Diabetes mellitus [Unknown]
  - Inappropriate schedule of drug administration [Unknown]
